FAERS Safety Report 7013152-4 (Version None)
Quarter: 2010Q3

REPORT INFORMATION
  Report Type: 
  Country: None (occurrence: None)
  Receive Date: 20100924
  Receipt Date: 20100913
  Transmission Date: 20110219
  Serious: Yes (Other)
  Sender: FDA-Public Use
  Company Number: CN-PFIZER INC-2010115070

PATIENT
  Age: 70 Year
  Sex: Male

DRUGS (3)
  1. CEFOPERAZONE SODIUM, SULBACTAM SODIUM [Suspect]
     Indication: INFECTION PROPHYLAXIS
     Dosage: 2.0 G, 3X/DAY
     Route: 042
  2. WARFARIN [Interacting]
     Indication: ANTICOAGULANT THERAPY
     Dosage: 2.5 G, 1X/DAY
  3. HEPARIN [Concomitant]
     Dosage: 4 UG/KG MIN, UNK

REACTIONS (2)
  - COAGULATION TIME PROLONGED [None]
  - DRUG INTERACTION [None]
